FAERS Safety Report 25662168 (Version 2)
Quarter: 2025Q3

REPORT INFORMATION
  Report Type: Spontaneous
  Country: US (occurrence: US)
  Receive Date: 20250810
  Receipt Date: 20250812
  Transmission Date: 20251020
  Serious: No
  Sender: CSL BEHRING
  Company Number: US-BEH-2025215465

PATIENT
  Age: 12 Month
  Sex: Female
  Weight: 14.059 kg

DRUGS (2)
  1. HIZENTRA [Suspect]
     Active Substance: HUMAN IMMUNOGLOBULIN G
     Indication: Hypogammaglobulinaemia
     Dosage: 4 G, QOW(EVERY 14 DAYS)
     Route: 058
     Dates: start: 20250805, end: 20250805
  2. HIZENTRA [Suspect]
     Active Substance: HUMAN IMMUNOGLOBULIN G
     Indication: Hypogammaglobulinaemia
     Dosage: 4 G, QOW(EVERY 14 DAYS)
     Route: 058
     Dates: start: 20250805, end: 20250805

REACTIONS (1)
  - Infusion site discharge [Unknown]

NARRATIVE: CASE EVENT DATE: 20250805
